FAERS Safety Report 4676762-5 (Version None)
Quarter: 2005Q2

REPORT INFORMATION
  Report Type: 
  Country: None (occurrence: None)
  Receive Date: 20050527
  Receipt Date: 20041210
  Transmission Date: 20051028
  Serious: Yes (Life-Threatening)
  Sender: FDA-Public Use
  Company Number: GB-MERCK-0412GBR00102

PATIENT
  Age: 68 Year
  Sex: Female

DRUGS (13)
  1. ZOCOR [Suspect]
     Indication: BLOOD CHOLESTEROL INCREASED
     Route: 048
     Dates: start: 20040921
  2. ZOCOR [Suspect]
     Route: 048
     Dates: end: 20040920
  3. WARFARIN [Suspect]
     Route: 065
     Dates: end: 20040101
  4. WARFARIN [Suspect]
     Route: 065
     Dates: start: 20040101
  5. ASPIRIN [Concomitant]
     Route: 065
  6. BENDROFLUMETHIAZIDE [Concomitant]
     Route: 065
  7. BISOPROLOL [Concomitant]
     Route: 065
  8. ISOSORBIDE MONONITRATE [Concomitant]
     Route: 065
  9. RISEDRONATE SODIUM [Concomitant]
     Route: 065
  10. SENNA [Concomitant]
     Route: 065
  11. VALPROATE SODIUM [Concomitant]
     Route: 065
  12. LEVOTHYROXINE SODIUM [Concomitant]
     Route: 065
  13. TRAMADOL HYDROCHLORIDE [Concomitant]
     Route: 065

REACTIONS (2)
  - DRUG INTERACTION [None]
  - INTERNATIONAL NORMALISED RATIO INCREASED [None]
